FAERS Safety Report 12872534 (Version 3)
Quarter: 2016Q4

REPORT INFORMATION
  Report Type: Spontaneous
  Country: US (occurrence: US)
  Receive Date: 20161021
  Receipt Date: 20161212
  Transmission Date: 20170207
  Serious: Yes (Hospitalization)
  Sender: FDA-Public Use
  Company Number: US-PFIZER INC-2016342473

PATIENT
  Age: 61 Year
  Sex: Male

DRUGS (1)
  1. LYRICA [Suspect]
     Active Substance: PREGABALIN
     Dosage: UNK

REACTIONS (6)
  - Pain [Unknown]
  - Myocardial infarction [Unknown]
  - Incorrect dose administered [Unknown]
  - Withdrawal syndrome [Unknown]
  - Hyperhidrosis [Unknown]
  - Stress [Unknown]
